FAERS Safety Report 4634224-5 (Version None)
Quarter: 2005Q2

REPORT INFORMATION
  Report Type: 
  Country: None (occurrence: None)
  Receive Date: 20050325
  Receipt Date: 20050110
  Transmission Date: 20051028
  Serious: No
  Sender: FDA-Public Use
  Company Number: USA030433804

PATIENT
  Age: 60 Year
  Sex: Female
  Weight: 62 kg

DRUGS (13)
  1. FORTEO [Suspect]
     Indication: OSTEOPOROSIS
     Dosage: 20 UG/2 WEEK
     Dates: start: 20030408
  2. PREVACID [Concomitant]
  3. TYLENOL [Concomitant]
  4. VIOXX [Concomitant]
  5. CITRACAL (CALCIUM CITRATE) [Concomitant]
  6. FLEXERIL [Concomitant]
  7. MYOFLEXIN (CHLORZOXAZONE) [Concomitant]
  8. AMBIEN [Concomitant]
  9. ATIVAN [Concomitant]
  10. MYOCHRYSINE /USA/(SODIUM AUROTHIOMALATE) [Concomitant]
  11. KENALOG (TRIAMCINLOATE ACETONIDE) [Concomitant]
  12. MULTI-VITAMIN [Concomitant]
  13. ZINC [Concomitant]

REACTIONS (13)
  - ANXIETY [None]
  - BLOOD PRESSURE DECREASED [None]
  - BONE PAIN [None]
  - BREAST MICROCALCIFICATION [None]
  - DECREASED APPETITE [None]
  - DIZZINESS [None]
  - HEADACHE [None]
  - ILL-DEFINED DISORDER [None]
  - INJECTION SITE ERYTHEMA [None]
  - INJECTION SITE RASH [None]
  - MUSCLE SPASMS [None]
  - NAUSEA [None]
  - STOMACH DISCOMFORT [None]
